FAERS Safety Report 21896397 (Version 1)
Quarter: 2023Q1

REPORT INFORMATION
  Report Type: Report from Study
  Country: US (occurrence: US)
  Receive Date: 20230123
  Receipt Date: 20230123
  Transmission Date: 20230418
  Serious: No
  Sender: FDA-Public Use
  Company Number: US-002147023-NVSC2023US011168

PATIENT
  Sex: Female

DRUGS (1)
  1. COSENTYX [Suspect]
     Active Substance: SECUKINUMAB
     Indication: Ankylosing spondylitis
     Dosage: 150 MG, QMO (Q 4 WEEKS)
     Route: 058

REACTIONS (3)
  - Malaise [Unknown]
  - Lethargy [Unknown]
  - Somnolence [Unknown]
